FAERS Safety Report 6175628-1 (Version None)
Quarter: 2009Q2

REPORT INFORMATION
  Report Type: 
  Country: None (occurrence: None)
  Receive Date: 20090501
  Receipt Date: 20090312
  Transmission Date: 20091009
  Serious: No
  Sender: FDA-Public Use
  Company Number: US-BAYER-200915364NA

PATIENT
  Age: 29 Year
  Sex: Female

DRUGS (1)
  1. YAZ [Suspect]
     Indication: CONTRACEPTION
     Route: 048
     Dates: start: 20080401, end: 20080701

REACTIONS (4)
  - DIZZINESS [None]
  - EMOTIONAL DISORDER [None]
  - HEART RATE INCREASED [None]
  - PANIC ATTACK [None]
